FAERS Safety Report 18758843 (Version 1)
Quarter: 2021Q1

REPORT INFORMATION
  Report Type: Spontaneous
  Country: US (occurrence: US)
  Receive Date: 20210120
  Receipt Date: 20210120
  Transmission Date: 20210419
  Serious: Yes (Other)
  Sender: FDA-Public Use
  Company Number: US-NOVAST LABORATORIES LTD.-2021NOV000002

PATIENT
  Age: 68 Year
  Sex: Female

DRUGS (26)
  1. FLUTICASONE. [Concomitant]
     Active Substance: FLUTICASONE
     Indication: RHINITIS ALLERGIC
     Dosage: 50 MICROGRAM, DAILY
     Route: 045
  2. SULFAMETHOXAZOLE?TRIMETHOPRIM [Concomitant]
     Active Substance: SULFAMETHOXAZOLE\TRIMETHOPRIM
     Indication: INFECTION PROPHYLAXIS
     Dosage: 3 TIMES A WEEK
     Route: 048
  3. GUAIFENESIN ER [Concomitant]
     Active Substance: GUAIFENESIN
     Indication: COUGH
     Dosage: 600 MILLIGRAM, BID
     Route: 048
  4. DILTIAZEM HYDROCHLORIDE. [Suspect]
     Active Substance: DILTIAZEM HYDROCHLORIDE
     Indication: TACHYCARDIA
     Dosage: 300 MILLIGRAM, DAILY
     Route: 048
  5. ALENDRONATE NA [Concomitant]
     Active Substance: ALENDRONATE SODIUM
     Indication: OSTEOPOROSIS
     Dosage: 70 MILLIGRAM, WEEKLY
     Route: 048
  6. ALENDRONATE NA [Concomitant]
     Active Substance: ALENDRONATE SODIUM
     Dosage: UNK
  7. LANSOPRAZOLE. [Concomitant]
     Active Substance: LANSOPRAZOLE
     Indication: GASTROOESOPHAGEAL REFLUX DISEASE
     Dosage: 15 MILLIGRAM, QAM
     Route: 048
  8. AZITHROMYCIN ANHYDROUS. [Concomitant]
     Active Substance: AZITHROMYCIN ANHYDROUS
     Indication: INFECTION PROPHYLAXIS
     Dosage: 250 MILLIGRAM, 3 TIMES A WEEK
     Route: 048
  9. BUDESONIDE/FORMOTEROL [Concomitant]
     Active Substance: BUDESONIDE\FORMOTEROL
     Indication: ASTHMA
     Dosage: UNK UNK, BID
  10. FENTANYL TRANSDERMAL SYSTEM [Concomitant]
     Active Substance: FENTANYL
     Indication: PAIN
     Dosage: 12 MICROGRAM/ HOUR, 1 PATCH ON SKIN EVERY 72 HOURS
     Route: 062
  11. VALACYCLOVIR [Concomitant]
     Active Substance: VALACYCLOVIR HYDROCHLORIDE
     Indication: HERPES SIMPLEX
     Dosage: 500 MILLIGRAM, BID
     Route: 048
  12. CHOLECALCIFEROL [Concomitant]
     Active Substance: CHOLECALCIFEROL
     Indication: SUPPLEMENTATION THERAPY
     Dosage: 2000 INTERNATIONAL UNIT, DAILY
     Route: 048
  13. TACROLIMUS. [Suspect]
     Active Substance: TACROLIMUS
     Dosage: 0.5 MILLIGRAM, BID, QAM
     Route: 048
  14. FAMOTIDINE. [Concomitant]
     Active Substance: FAMOTIDINE
     Indication: GASTROOESOPHAGEAL REFLUX DISEASE
     Dosage: 20 MILLIGRAM, BID
     Route: 048
  15. PREDNISONE. [Concomitant]
     Active Substance: PREDNISONE
     Indication: IMMUNOSUPPRESSION
     Dosage: 10 MILLIGRAM, DAILY
     Route: 048
     Dates: start: 201811
  16. DILTIAZEM HYDROCHLORIDE. [Suspect]
     Active Substance: DILTIAZEM HYDROCHLORIDE
     Indication: HYPERTENSION
     Dosage: 240 MILLIGRAM, DAILY
     Route: 048
     Dates: start: 2019
  17. SODIUM?POTASSIUM PHOSPHATES POWDER [Concomitant]
     Indication: HYPOPHOSPHATAEMIA
     Dosage: 1 PACKET QID (WITH MEALS AND AT BEDTIME)
     Route: 048
  18. FLUCONAZOLE. [Suspect]
     Active Substance: FLUCONAZOLE
     Indication: CANDIDA OSTEOMYELITIS
     Dosage: 400 MILLIGRAM, DAILY
     Route: 048
     Dates: start: 201905
  19. IPRATROPIUM BROMIDE SPRAY [Concomitant]
     Active Substance: IPRATROPIUM BROMIDE
     Indication: RHINITIS
     Dosage: 17 MICROGRAM,BID
     Route: 045
  20. MYCOPHENOLATE MOFETIL. [Concomitant]
     Active Substance: MYCOPHENOLATE MOFETIL
     Indication: IMMUNOSUPPRESSION
     Dosage: 250 MILLIGRAM, BID
     Route: 048
     Dates: start: 201811
  21. GUAIFENESIN ER [Concomitant]
     Active Substance: GUAIFENESIN
     Indication: PULMONARY CONGESTION
  22. KETOCONAZOLE. [Concomitant]
     Active Substance: KETOCONAZOLE
     Indication: FUNGAL INFECTION
     Dosage: APPLY UNDER BREASTS TO INFECTED SITE QOD
     Route: 061
  23. TACROLIMUS. [Suspect]
     Active Substance: TACROLIMUS
     Indication: IMMUNOSUPPRESSION
     Dosage: UNK UNKNOWN
     Route: 065
     Dates: start: 201811
  24. LIDOCAINE. [Concomitant]
     Active Substance: LIDOCAINE
     Indication: PAIN
     Dosage: 1 PATCH ON SKIN DAILY
     Route: 062
  25. ACETAMINOPHEN. [Concomitant]
     Active Substance: ACETAMINOPHEN
     Indication: PAIN
     Dosage: 325 MILLIGRAM,Q6H PRN
     Route: 048
  26. MAGNESIUM GLYCINATE [Concomitant]
     Active Substance: MAGNESIUM GLYCINATE
     Indication: HYPOMAGNESAEMIA
     Dosage: 650 MILLIGRAM, QAN
     Route: 048

REACTIONS (6)
  - Drug interaction [Unknown]
  - Bradykinesia [Recovered/Resolved]
  - Tachycardia [Unknown]
  - Condition aggravated [Unknown]
  - Asthenia [Unknown]
  - Tremor [Unknown]
